FAERS Safety Report 7118343-X (Version None)
Quarter: 2010Q4

REPORT INFORMATION
  Report Type: 
  Country: None (occurrence: None)
  Receive Date: 20101123
  Receipt Date: 20101111
  Transmission Date: 20110411
  Serious: Yes (Hospitalization)
  Sender: FDA-Public Use
  Company Number: PHHY2010CA76392

PATIENT
  Sex: Male

DRUGS (1)
  1. SANDOSTATIN LAR [Suspect]
     Indication: NEUROENDOCRINE CARCINOMA
     Dosage: 30 MG EVERY 04 WEEKS
     Route: 030
     Dates: start: 20090727

REACTIONS (2)
  - CATHETER PLACEMENT [None]
  - STEM CELL TRANSPLANT [None]
